FAERS Safety Report 6940109-1 (Version None)
Quarter: 2010Q3

REPORT INFORMATION
  Report Type: 
  Country: None (occurrence: None)
  Receive Date: 20100820
  Receipt Date: 20100805
  Transmission Date: 20110219
  Serious: Yes (Hospitalization)
  Sender: FDA-Public Use
  Company Number: 2010S1000527

PATIENT
  Age: 62 Year
  Sex: Female
  Weight: 68 kg

DRUGS (7)
  1. LIVALO [Suspect]
     Indication: HYPERCHOLESTEROLAEMIA
     Dosage: 2 MG 1X PO
     Route: 048
     Dates: start: 20041130, end: 20071127
  2. PERINDOPRIL ERBUMINE [Concomitant]
  3. MICARDIS [Concomitant]
  4. AZELASTINE HCL [Concomitant]
  5. PENFILL 30R [Concomitant]
  6. MELBIN /00082702/ [Concomitant]
  7. BLOPRESS [Concomitant]

REACTIONS (4)
  - ABDOMINAL PAIN [None]
  - HYDRONEPHROSIS [None]
  - PYREXIA [None]
  - VOMITING [None]
